FAERS Safety Report 8806553 (Version 2)
Quarter: 2012Q4

REPORT INFORMATION
  Report Type: Report from Study
  Country: US (occurrence: US)
  Receive Date: 20120925
  Receipt Date: 20121108
  Transmission Date: 20130627
  Serious: Yes (Other)
  Sender: FDA-Public Use
  Company Number: US-JNJFOC-20120908356

PATIENT
  Age: 9 None
  Sex: Male
  Weight: 35.38 kg

DRUGS (10)
  1. REMICADE [Suspect]
     Indication: UVEITIS
     Route: 042
     Dates: start: 200810
  2. REMICADE [Suspect]
     Indication: UVEITIS
     Route: 042
     Dates: start: 2012
  3. REMICADE [Suspect]
     Indication: UVEITIS
     Route: 042
     Dates: start: 201105, end: 2012
  4. REMICADE [Suspect]
     Indication: UVEITIS
     Route: 042
     Dates: start: 20120716, end: 2012
  5. REMICADE [Suspect]
     Indication: UVEITIS
     Route: 042
     Dates: end: 201105
  6. REMICADE [Suspect]
     Indication: JUVENILE ARTHRITIS
     Route: 042
     Dates: end: 201105
  7. REMICADE [Suspect]
     Indication: JUVENILE ARTHRITIS
     Route: 042
     Dates: start: 200810
  8. REMICADE [Suspect]
     Indication: JUVENILE ARTHRITIS
     Route: 042
     Dates: start: 2012
  9. REMICADE [Suspect]
     Indication: JUVENILE ARTHRITIS
     Route: 042
     Dates: start: 20120716, end: 2012
  10. REMICADE [Suspect]
     Indication: JUVENILE ARTHRITIS
     Route: 042
     Dates: start: 201105, end: 2012

REACTIONS (5)
  - Dyspnoea [Recovered/Resolved]
  - Cough [Recovered/Resolved]
  - Throat irritation [Recovered/Resolved]
  - Uveitis [Unknown]
  - Infusion related reaction [Recovered/Resolved]
